FAERS Safety Report 7774860-0 (Version None)
Quarter: 2011Q3

REPORT INFORMATION
  Report Type: 
  Country: None (occurrence: None)
  Receive Date: 20110921
  Receipt Date: 20110909
  Transmission Date: 20111222
  Serious: Yes (Death, Other)
  Sender: FDA-Public Use
  Company Number: FK201101877

PATIENT
  Age: 10 Year
  Sex: Male

DRUGS (2)
  1. TEMOZOLOMIDE [Suspect]
     Indication: PRODUCT USED FOR UNKNOWN INDICATION
     Dosage: 75 MG/M2, DAILY
  2. DEXAMETHASONE SODIUM PHOSPHATE [Suspect]
     Indication: PRODUCT USED FOR UNKNOWN INDICATION

REACTIONS (5)
  - SALMONELLOSIS [None]
  - GLIOBLASTOMA MULTIFORME [None]
  - NEOPLASM PROGRESSION [None]
  - PANCYTOPENIA [None]
  - MYELODYSPLASTIC SYNDROME [None]
